FAERS Safety Report 11673165 (Version 1)
Quarter: 2015Q4

REPORT INFORMATION
  Report Type: Spontaneous
  Country: US (occurrence: None)
  Receive Date: 20151027
  Receipt Date: 20151027
  Transmission Date: 20160304
  Serious: No
  Sender: FDA-Public Use
  Company Number: None

PATIENT
  Age: 55 Year
  Sex: Female

DRUGS (9)
  1. ATENOLOL. [Concomitant]
     Active Substance: ATENOLOL
  2. SERTRALINE [Concomitant]
     Active Substance: SERTRALINE HYDROCHLORIDE
  3. PAROXETINE [Concomitant]
     Active Substance: PAROXETINE\PAROXETINE HYDROCHLORIDE
  4. POTASSIUM [Concomitant]
     Active Substance: POTASSIUM
  5. QUETIAPINE [Concomitant]
     Active Substance: QUETIAPINE
  6. TASIGNA [Suspect]
     Active Substance: NILOTINIB
     Indication: NEOPLASM MALIGNANT
     Dosage: QAM
     Route: 048
     Dates: start: 201307
  7. PREDNISONE. [Concomitant]
     Active Substance: PREDNISONE
  8. FUROSEMIDE. [Concomitant]
     Active Substance: FUROSEMIDE
  9. NORCO [Concomitant]
     Active Substance: ACETAMINOPHEN\HYDROCODONE BITARTRATE

REACTIONS (4)
  - Drug dose omission [None]
  - Dyspnoea [None]
  - Arthralgia [None]
  - Pain [None]
